FAERS Safety Report 11271690 (Version 2)
Quarter: 2015Q3

REPORT INFORMATION
  Report Type: Spontaneous
  Country: US (occurrence: US)
  Receive Date: 20150715
  Receipt Date: 20150805
  Transmission Date: 20151125
  Serious: No
  Sender: FDA-Public Use
  Company Number: US-LEO PHARMA-235482

PATIENT
  Age: 65 Year
  Sex: Female

DRUGS (1)
  1. PICATO [Suspect]
     Active Substance: INGENOL MEBUTATE
     Indication: PRODUCT USED FOR UNKNOWN INDICATION

REACTIONS (6)
  - Application site pain [Recovering/Resolving]
  - Application site warmth [Recovering/Resolving]
  - Application site vesicles [Recovering/Resolving]
  - Application site swelling [Recovering/Resolving]
  - Cellulitis [Recovering/Resolving]
  - Application site erythema [Recovering/Resolving]
